FAERS Safety Report 10012579 (Version 3)
Quarter: 2014Q2

REPORT INFORMATION
  Report Type: Spontaneous
  Country: JP (occurrence: JP)
  Receive Date: 20140314
  Receipt Date: 20140415
  Transmission Date: 20141212
  Serious: Yes (Death, Hospitalization, Other)
  Sender: FDA-Public Use
  Company Number: JP-PFIZER INC-2014072363

PATIENT
  Age: 77 Year
  Sex: Female

DRUGS (8)
  1. MEDROL [Suspect]
     Indication: TEMPORAL ARTERITIS
     Dosage: 12 MG DAILY
     Route: 048
  2. AZATHIOPRINE [Suspect]
     Indication: TEMPORAL ARTERITIS
     Dosage: 75 MG DAILY
     Route: 048
  3. PREDONINE [Suspect]
     Dosage: UNK
  4. ARGATROBAN [Concomitant]
  5. ASPIRIN [Concomitant]
  6. CLOPIDOGREL [Concomitant]
  7. PREDNISOLONE [Concomitant]
  8. CYCLOPHOSPHAMIDE [Concomitant]

REACTIONS (2)
  - No adverse event [Fatal]
  - No adverse event [Not Recovered/Not Resolved]
